FAERS Safety Report 14995462 (Version 4)
Quarter: 2021Q3

REPORT INFORMATION
  Report Type: Spontaneous
  Country: US (occurrence: US)
  Receive Date: 20180611
  Receipt Date: 20210806
  Transmission Date: 20211014
  Serious: No
  Sender: FDA-Public Use
  Company Number: US-SA-2018SA153547

PATIENT
  Age: 68 Year
  Sex: Female

DRUGS (31)
  1. DUPIXENT [Suspect]
     Active Substance: DUPILUMAB
     Indication: POLYMYOSITIS
     Dosage: 300 MG, QOW
     Route: 058
     Dates: start: 20180410
  2. CLINDAMYCIN. [Concomitant]
     Active Substance: CLINDAMYCIN
  3. TRAMADOL. [Concomitant]
     Active Substance: TRAMADOL
  4. LEVOTHYROXINE. [Concomitant]
     Active Substance: LEVOTHYROXINE
  5. DUPIXENT [Suspect]
     Active Substance: DUPILUMAB
     Indication: DERMATITIS ATOPIC
     Dosage: 300 MG, QOW
     Dates: start: 20180502
  6. LISINOPRIL. [Concomitant]
     Active Substance: LISINOPRIL
  7. LORATADINE. [Concomitant]
     Active Substance: LORATADINE
  8. EPIPEN [Concomitant]
     Active Substance: EPINEPHRINE
  9. PREDNISONE. [Concomitant]
     Active Substance: PREDNISONE
  10. LEVOTHYROXINE SODIUM. [Concomitant]
     Active Substance: LEVOTHYROXINE SODIUM
  11. ATORVASTATIN [Concomitant]
     Active Substance: ATORVASTATIN
  12. ZYLET [Concomitant]
     Active Substance: LOTEPREDNOL ETABONATE\TOBRAMYCIN
  13. VENTOLIN HFA [Concomitant]
     Active Substance: ALBUTEROL SULFATE
  14. PANTOPRAZOLE SODIUM. [Concomitant]
     Active Substance: PANTOPRAZOLE SODIUM
  15. FLUTICASONE PROPIONATE. [Concomitant]
     Active Substance: FLUTICASONE PROPIONATE
  16. MODERNA COVID?19 VACCINE [Concomitant]
     Active Substance: CX-024414
  17. SYMBICORT [Concomitant]
     Active Substance: BUDESONIDE\FORMOTEROL FUMARATE DIHYDRATE
  18. VENTOLIN [Concomitant]
     Active Substance: ALBUTEROL SULFATE
  19. DESOXIMETASON [Concomitant]
     Active Substance: DESOXIMETASONE
  20. FLUOROMETHOLON [Concomitant]
     Active Substance: FLUOROMETHOLONE
  21. HYDROCHLOROTH [Concomitant]
     Active Substance: HYDROCHLOROTHIAZIDE
  22. TOBRAMYCIN/DEXAMET [Concomitant]
  23. HYDROXYZINE [Concomitant]
     Active Substance: HYDROXYZINE HYDROCHLORIDE
  24. CLOPIDOGREL [Concomitant]
     Active Substance: CLOPIDOGREL BISULFATE
  25. AZELASTINE HCL [Concomitant]
     Active Substance: AZELASTINE HYDROCHLORIDE
  26. LATANOPROST. [Concomitant]
     Active Substance: LATANOPROST
  27. DESONIDE. [Concomitant]
     Active Substance: DESONIDE
  28. HYDROCORTISON [HYDROCORTISONE] [Concomitant]
  29. ATORVASTATIN CALCIUM. [Concomitant]
     Active Substance: ATORVASTATIN CALCIUM
  30. ATENOLOL. [Concomitant]
     Active Substance: ATENOLOL
  31. FLUTICASONE. [Concomitant]
     Active Substance: FLUTICASONE

REACTIONS (7)
  - Pruritus [Unknown]
  - Erythema [Unknown]
  - Eye infection [Not Recovered/Not Resolved]
  - Eye disorder [Unknown]
  - Urticaria [Not Recovered/Not Resolved]
  - Skin warm [Unknown]
  - Dermatitis atopic [Unknown]

NARRATIVE: CASE EVENT DATE: 201805
